FAERS Safety Report 15902468 (Version 2)
Quarter: 2019Q1

REPORT INFORMATION
  Report Type: Spontaneous
  Country: US (occurrence: US)
  Receive Date: 20190201
  Receipt Date: 20190325
  Transmission Date: 20190417
  Serious: No
  Sender: FDA-Public Use
  Company Number: US-GLAXOSMITHKLINE-US2019013648

PATIENT
  Sex: Male

DRUGS (3)
  1. NEBULIZED ALBUTEROL [Concomitant]
     Active Substance: ALBUTEROL
  2. FLOVENT [Suspect]
     Active Substance: FLUTICASONE PROPIONATE
     Indication: ASTHMA
     Route: 055
  3. ALBUTEROL. [Concomitant]
     Active Substance: ALBUTEROL

REACTIONS (4)
  - Wrong technique in product usage process [Unknown]
  - Product use issue [Unknown]
  - Product dose omission [Unknown]
  - Product complaint [Unknown]
